FAERS Safety Report 21940882 (Version 2)
Quarter: 2023Q1

REPORT INFORMATION
  Report Type: Spontaneous
  Country: PT (occurrence: PT)
  Receive Date: 20230202
  Receipt Date: 20230315
  Transmission Date: 20230417
  Serious: No
  Sender: FDA-Public Use
  Company Number: PT-TEVA-2022-PT-2831817

PATIENT
  Age: 16 Year
  Sex: Female

DRUGS (5)
  1. ENALAPRIL [Suspect]
     Active Substance: ENALAPRIL
     Indication: Nephrotic syndrome
     Dosage: UNK
     Route: 048
  2. FUROSEMIDE [Suspect]
     Active Substance: FUROSEMIDE
     Indication: Nephrotic syndrome
     Dosage: UNK
     Route: 048
  3. ZINC ACETATE [Concomitant]
     Active Substance: ZINC ACETATE
     Indication: Hepato-lenticular degeneration
     Dosage: UNK
     Route: 065
  4. ZINC ACETATE [Concomitant]
     Active Substance: ZINC ACETATE
     Indication: Nephrotic syndrome
  5. PREDNISOLONE [Concomitant]
     Active Substance: PREDNISOLONE
     Indication: Nephrotic syndrome
     Dosage: UNK
     Route: 065

REACTIONS (2)
  - Oedema [Unknown]
  - Drug ineffective [Unknown]
